FAERS Safety Report 13245462 (Version 9)
Quarter: 2017Q3

REPORT INFORMATION
  Report Type: Spontaneous
  Country: KR (occurrence: KR)
  Receive Date: 20170217
  Receipt Date: 20170802
  Transmission Date: 20171127
  Serious: Yes (Hospitalization, Other)
  Sender: FDA-Public Use
  Company Number: KR-009507513-1702KOR006172

PATIENT
  Age: 60 Year
  Sex: Male
  Weight: 49 kg

DRUGS (43)
  1. CISPLATIN. [Concomitant]
     Active Substance: CISPLATIN
     Dosage: 75 MG, ONCE, CYCLE 4
     Route: 042
     Dates: start: 20170414, end: 20170414
  2. MANNITOL. [Concomitant]
     Active Substance: MANNITOL
     Dosage: 100 ML, ONCE
     Route: 042
     Dates: start: 20170414, end: 20170414
  3. DUROGESIC [Concomitant]
     Active Substance: FENTANYL
     Indication: CANCER PAIN
     Dosage: 1 PATCH (12 MICROGRAM/H 5.25 CM3), QD
     Route: 062
     Dates: start: 20170130, end: 20170204
  4. ENDIS [Concomitant]
     Indication: COUGH
     Dosage: 300 MG, TID
     Route: 048
     Dates: start: 20170131, end: 20170213
  5. CLEXANE (ENOXAPARIN SODIUM) [Concomitant]
     Active Substance: ENOXAPARIN SODIUM
     Indication: THROMBOSIS PROPHYLAXIS
     Dosage: 1 SYRINGE, QD
     Route: 058
     Dates: start: 20170208, end: 20170212
  6. DEXAMETHASONE SODIUM PHOSPHATE. [Concomitant]
     Active Substance: DEXAMETHASONE SODIUM PHOSPHATE
     Indication: SPINAL CORD COMPRESSION
     Dosage: 5 MG, QID
     Route: 042
     Dates: start: 20170201, end: 20170204
  7. CISPLATIN. [Concomitant]
     Active Substance: CISPLATIN
     Indication: CHEMOTHERAPY
     Dosage: 105 MG, ONCE, CYCLE 1
     Route: 042
     Dates: start: 20170208, end: 20170208
  8. DEXAMETHASONE SODIUM PHOSPHATE. [Concomitant]
     Active Substance: DEXAMETHASONE SODIUM PHOSPHATE
     Dosage: 12 MG, ONCE
     Route: 042
     Dates: start: 20170414, end: 20170414
  9. ALOXI [Concomitant]
     Active Substance: PALONOSETRON HYDROCHLORIDE
     Dosage: 0.25 MG, ONCE
     Route: 042
     Dates: start: 20170414, end: 20170414
  10. LASIX [Concomitant]
     Active Substance: FUROSEMIDE
     Indication: PREMEDICATION
     Dosage: 20 MG, ONCE
     Route: 042
     Dates: start: 20170208, end: 20170208
  11. SCD MAGNESIUM OXIDE [Concomitant]
     Indication: CONSTIPATION PROPHYLAXIS
     Dosage: 250 MG, TID
     Route: 048
     Dates: start: 20170203, end: 20170413
  12. TRIDOL (TRAMADOL HYDROCHLORIDE) [Concomitant]
     Indication: CANCER PAIN
     Dosage: 50 MG, ONCE DAILY
     Route: 042
     Dates: start: 20170129, end: 20170131
  13. URSA TABLETS [Concomitant]
     Indication: PROPHYLAXIS
     Dosage: 100 MG, TID
     Route: 048
     Dates: start: 20170130, end: 20170221
  14. MEDILAC-DS [Concomitant]
     Indication: PROPHYLAXIS AGAINST DIARRHOEA
     Dosage: 1 CAPSULE, TID
     Route: 048
     Dates: start: 20170130, end: 20170206
  15. DEXAMETHASONE SODIUM PHOSPHATE. [Concomitant]
     Active Substance: DEXAMETHASONE SODIUM PHOSPHATE
     Dosage: 5 MG, QD
     Route: 042
     Dates: start: 20170212, end: 20170216
  16. CISPLATIN. [Concomitant]
     Active Substance: CISPLATIN
     Dosage: 85 MG, ONCE, ^CYCLE 1^
     Route: 042
     Dates: start: 20170513, end: 20170513
  17. DEXAMETHASONE SODIUM PHOSPHATE. [Concomitant]
     Active Substance: DEXAMETHASONE SODIUM PHOSPHATE
     Indication: PROPHYLAXIS OF NAUSEA AND VOMITING
     Dosage: 12 MG, ONCE
     Route: 042
     Dates: start: 20170208, end: 20170208
  18. DEXAMETHASONE SODIUM PHOSPHATE. [Concomitant]
     Active Substance: DEXAMETHASONE SODIUM PHOSPHATE
     Dosage: 8 MG, ONCE
     Route: 042
     Dates: start: 20170209, end: 20170209
  19. ALOXI [Concomitant]
     Active Substance: PALONOSETRON HYDROCHLORIDE
     Indication: PROPHYLAXIS OF NAUSEA AND VOMITING
     Dosage: 0.25 MG, ONCE
     Route: 042
     Dates: start: 20170208, end: 20170208
  20. MANNITOL. [Concomitant]
     Active Substance: MANNITOL
     Dosage: 100 ML, ONCE
     Route: 042
     Dates: start: 20170513, end: 20170513
  21. ANAPROX [Concomitant]
     Active Substance: NAPROXEN SODIUM
     Indication: CANCER PAIN
     Dosage: 275 MG, TID
     Route: 048
     Dates: start: 20170202
  22. DEXAMETHASONE SODIUM PHOSPHATE. [Concomitant]
     Active Substance: DEXAMETHASONE SODIUM PHOSPHATE
     Dosage: 5 MG, TID
     Route: 042
     Dates: start: 20170205, end: 20170206
  23. DEXAMETHASONE SODIUM PHOSPHATE. [Concomitant]
     Active Substance: DEXAMETHASONE SODIUM PHOSPHATE
     Dosage: 5 MG, BID
     Route: 042
     Dates: start: 20170207, end: 20170207
  24. DEXAMETHASONE SODIUM PHOSPHATE. [Concomitant]
     Active Substance: DEXAMETHASONE SODIUM PHOSPHATE
     Dosage: 12 MG, ONCE
     Route: 042
     Dates: start: 20170513, end: 20170513
  25. LASIX [Concomitant]
     Active Substance: FUROSEMIDE
     Dosage: 20 MG, ONCE
     Route: 042
     Dates: start: 20170513, end: 20170513
  26. MANNITOL. [Concomitant]
     Active Substance: MANNITOL
     Indication: PREMEDICATION
     Dosage: 100 ML, ONCE
     Route: 042
     Dates: start: 20170208, end: 20170208
  27. LYRICA [Concomitant]
     Active Substance: PREGABALIN
     Indication: CANCER PAIN
     Dosage: 150 MG, BID
     Route: 048
     Dates: start: 20170203
  28. EMEND (FOSAPREPITANT DIMEGLUMINE) [Suspect]
     Active Substance: FOSAPREPITANT DIMEGLUMINE
     Dosage: 150 MG, ONCE
     Route: 042
     Dates: start: 20170513, end: 20170513
  29. MUCOSTEN [Concomitant]
     Indication: PROPHYLAXIS
     Dosage: 300 MG, TID
     Route: 042
     Dates: start: 20170129, end: 20170130
  30. MUCOSTEN [Concomitant]
     Dosage: 300 MG, TID
     Route: 042
     Dates: start: 20170213, end: 20170221
  31. GANAKHAN [Concomitant]
     Indication: PROPHYLAXIS
     Dosage: 50 MG, QD
     Route: 048
     Dates: start: 20170206, end: 20170208
  32. EMEND (FOSAPREPITANT DIMEGLUMINE) [Suspect]
     Active Substance: FOSAPREPITANT DIMEGLUMINE
     Indication: PROPHYLAXIS OF NAUSEA AND VOMITING
     Dosage: 150 MG, ONCE
     Route: 042
     Dates: start: 20170208, end: 20170208
  33. EMEND (FOSAPREPITANT DIMEGLUMINE) [Suspect]
     Active Substance: FOSAPREPITANT DIMEGLUMINE
     Dosage: 150 MG, ONCE
     Route: 042
     Dates: start: 20170414, end: 20170414
  34. LASTET [Concomitant]
     Active Substance: ETOPOSIDE
     Indication: CHEMOTHERAPY
     Dosage: 150 MG, QD, CYCLE 1
     Route: 042
     Dates: start: 20170208, end: 20170209
  35. JURNISTA [Concomitant]
     Active Substance: HYDROMORPHONE HYDROCHLORIDE
     Indication: CANCER PAIN
     Dosage: 16 MG, QD
     Route: 048
     Dates: start: 20170206
  36. LEGALON [Concomitant]
     Active Substance: MILK THISTLE
     Indication: PROPHYLAXIS
     Dosage: 1 CAPSULE, TID
     Route: 048
     Dates: start: 20170130, end: 20170221
  37. LASTET [Concomitant]
     Active Substance: ETOPOSIDE
     Dosage: 111 MG, QD, CYCLE 4
     Route: 042
     Dates: start: 20170414, end: 20170416
  38. DEXAMETHASONE SODIUM PHOSPHATE. [Concomitant]
     Active Substance: DEXAMETHASONE SODIUM PHOSPHATE
     Dosage: 8 MG, BID
     Route: 042
     Dates: start: 20170210, end: 20170211
  39. ALOXI [Concomitant]
     Active Substance: PALONOSETRON HYDROCHLORIDE
     Dosage: 0.25 MG, ONCE
     Route: 042
     Dates: start: 20170513, end: 20170513
  40. LASIX [Concomitant]
     Active Substance: FUROSEMIDE
     Dosage: 20 MG, ONCE
     Route: 042
     Dates: start: 20170414, end: 20170414
  41. COUGH SYRUP (AMMONIUM CHLORIDE (+) CHLORPHENIRAMINE MALEATE (+) DIHYDR [Concomitant]
     Indication: COUGH
     Dosage: 20 ML, BID
     Route: 048
     Dates: start: 20170129, end: 20170131
  42. CEFTRIAXONE SODIUM. [Concomitant]
     Active Substance: CEFTRIAXONE SODIUM
     Indication: INFECTION PROPHYLAXIS
     Dosage: 2 G, ONCE
     Route: 042
     Dates: start: 20170129, end: 20170129
  43. DEXAMETHASONE SODIUM PHOSPHATE. [Concomitant]
     Active Substance: DEXAMETHASONE SODIUM PHOSPHATE
     Dosage: 8 MG, QD
     Route: 042
     Dates: start: 20170415, end: 20170417

REACTIONS (4)
  - Nausea [Recovered/Resolved]
  - Febrile neutropenia [Recovered/Resolved]
  - Femur fracture [Recovered/Resolved]
  - Pneumonia [Recovered/Resolved]

NARRATIVE: CASE EVENT DATE: 20170209
